FAERS Safety Report 8278024-6 (Version None)
Quarter: 2012Q2

REPORT INFORMATION
  Report Type: 
  Country: None (occurrence: None)
  Receive Date: 20120412
  Receipt Date: 20120410
  Transmission Date: 20120825
  Serious: Yes (Other)
  Sender: FDA-Public Use
  Company Number: US-PFIZER INC-2012089355

PATIENT
  Sex: Female

DRUGS (2)
  1. LYRICA [Suspect]
  2. CELEBREX [Suspect]

REACTIONS (3)
  - CEREBROVASCULAR ACCIDENT [None]
  - EYE DISORDER [None]
  - HEADACHE [None]
